FAERS Safety Report 14982370 (Version 1)
Quarter: 2018Q2

REPORT INFORMATION
  Report Type: Spontaneous
  Country: US (occurrence: US)
  Receive Date: 20180515
  Receipt Date: 20180515
  Transmission Date: 20180711
  Serious: No
  Sender: FDA-Public Use
  Company Number: None

PATIENT
  Age: 74 Year
  Sex: Female
  Weight: 63.05 kg

DRUGS (9)
  1. VITAMIN C [Concomitant]
     Active Substance: ASCORBIC ACID
  2. CO-Q10 [Concomitant]
  3. MULTIPLE VIT [Concomitant]
  4. TOPROLOL TARTRATE [Concomitant]
  5. LORTADINE [Concomitant]
  6. ATORVASTATIN [Concomitant]
     Active Substance: ATORVASTATIN
  7. D-3 [Concomitant]
     Active Substance: CHOLECALCIFEROL
  8. DICYCLOMINE [Suspect]
     Active Substance: DICYCLOMINE HYDROCHLORIDE
     Indication: GASTROINTESTINAL PAIN
     Dosage: ?          QUANTITY:1 DF DOSAGE FORM;?
     Route: 048
  9. ASPIRIN. [Concomitant]
     Active Substance: ASPIRIN

REACTIONS (2)
  - Blood pressure increased [None]
  - Dyspnoea [None]

NARRATIVE: CASE EVENT DATE: 20180418
